FAERS Safety Report 10374583 (Version 1)
Quarter: 2014Q3

REPORT INFORMATION
  Report Type: Spontaneous
  Country: US (occurrence: None)
  Receive Date: 20140808
  Receipt Date: 20140808
  Transmission Date: 20150326
  Serious: Yes (Other)
  Sender: FDA-Public Use
  Company Number: None

PATIENT
  Age: 42 Year
  Sex: Male
  Weight: 122.02 kg

DRUGS (1)
  1. BENGAY ULTRA STRENGTH REGULAR SIZE [Suspect]
     Active Substance: MENTHOL
     Indication: BACK PAIN
     Dates: start: 20140801, end: 20140807

REACTIONS (1)
  - Hypersensitivity [None]

NARRATIVE: CASE EVENT DATE: 20140801
